FAERS Safety Report 19231091 (Version 1)
Quarter: 2021Q2

REPORT INFORMATION
  Report Type: Spontaneous
  Country: US (occurrence: US)
  Receive Date: 20210507
  Receipt Date: 20210507
  Transmission Date: 20210717
  Serious: Yes (Other)
  Sender: FDA-Public Use
  Company Number: US-ELI_LILLY_AND_COMPANY-US202105000064

PATIENT
  Sex: Female

DRUGS (6)
  1. MILK THISTLE [SILYBUM MARIANUM SEED] [Concomitant]
     Indication: NUTRITIONAL SUPPLEMENTATION
  2. VERZENIO [Suspect]
     Active Substance: ABEMACICLIB
     Indication: BREAST CANCER METASTATIC
     Dosage: 150 MG, UNKNOWN
     Route: 048
     Dates: start: 202102
  3. ZOLADEX [Concomitant]
     Active Substance: GOSERELIN ACETATE
     Indication: BREAST CANCER METASTATIC
  4. FASLODEX [Concomitant]
     Active Substance: FULVESTRANT
     Indication: BREAST CANCER METASTATIC
  5. XGEVA [Concomitant]
     Active Substance: DENOSUMAB
     Indication: BONE DISORDER
  6. COVID?19 VACCINE NOS. [Concomitant]
     Active Substance: COVID-19 VACCINE NOS
     Indication: COVID-19 IMMUNISATION

REACTIONS (5)
  - Hepatic enzyme increased [Unknown]
  - Aspartate aminotransferase increased [Not Recovered/Not Resolved]
  - Transient ischaemic attack [Recovered/Resolved]
  - Wrong technique in product usage process [Unknown]
  - Alanine aminotransferase increased [Not Recovered/Not Resolved]
